FAERS Safety Report 5777617-5 (Version None)
Quarter: 2008Q2

REPORT INFORMATION
  Report Type: 
  Country: None (occurrence: None)
  Receive Date: 20080618
  Receipt Date: 20080617
  Transmission Date: 20081010
  Serious: Yes (Death, Other)
  Sender: FDA-Public Use
  Company Number: US-WYE-H04124008

PATIENT
  Age: 66 Year
  Sex: Female

DRUGS (3)
  1. ROBITUSSIN DM [Suspect]
     Indication: COUGH
     Dosage: TWO TEASPOONS PER LABEL
     Route: 048
     Dates: start: 20080410, end: 20080401
  2. ROBITUSSIN DM [Suspect]
     Indication: PHARYNGOLARYNGEAL PAIN
  3. WELLBUTRIN [Concomitant]

REACTIONS (3)
  - DIARRHOEA [None]
  - PNEUMONIA [None]
  - SEPSIS [None]
